FAERS Safety Report 6827721-5 (Version None)
Quarter: 2010Q3

REPORT INFORMATION
  Report Type: 
  Country: None (occurrence: None)
  Receive Date: 20100709
  Receipt Date: 20070126
  Transmission Date: 20110219
  Serious: No
  Sender: FDA-Public Use
  Company Number: US-PFIZER INC-2007008386

PATIENT
  Sex: Female

DRUGS (7)
  1. CHANTIX [Suspect]
     Indication: SMOKING CESSATION THERAPY
     Dates: start: 20070101
  2. SERZONE [Concomitant]
  3. VALIUM [Concomitant]
     Indication: ANXIETY
  4. AMBIEN [Concomitant]
     Indication: SLEEP DISORDER
  5. SERZONE [Concomitant]
  6. VALIUM [Concomitant]
  7. AMBIEN [Concomitant]

REACTIONS (3)
  - SOMNOLENCE [None]
  - STRESS [None]
  - TOBACCO USER [None]
